FAERS Safety Report 19899126 (Version 2)
Quarter: 2021Q4

REPORT INFORMATION
  Report Type: Report from Study
  Country: KR (occurrence: KR)
  Receive Date: 20210930
  Receipt Date: 20211005
  Transmission Date: 20220303
  Serious: Yes (Hospitalization, Other)
  Sender: FDA-Public Use
  Company Number: KR-ROCHE-2771067

PATIENT
  Age: 65 Year
  Sex: Male
  Weight: 55.6 kg

DRUGS (8)
  1. ATEZOLIZUMAB [Suspect]
     Active Substance: ATEZOLIZUMAB
     Indication: Non-small cell lung cancer stage IV
     Dosage: DATE OF LAST DOSE PRIOR TO ADVERSE EVENT: 23/FEB/2021?ON 31/AUG/2021, HE RECEIVED MOST RECENT DOSE O
     Route: 041
     Dates: start: 20201222
  2. BEVACIZUMAB [Suspect]
     Active Substance: BEVACIZUMAB
     Indication: Non-small cell lung cancer stage IV
     Dosage: DATE OF LAST DOSE PRIOR TO ADVERSE EVENT: 23/FEB/2021.?ON 31/AUG/2021, HE RECEIVED MOST RECENT DOSE
     Route: 042
     Dates: start: 20201222
  3. PACLITAXEL [Suspect]
     Active Substance: PACLITAXEL
     Indication: Non-small cell lung cancer stage IV
     Dosage: DATE OF LAST DOSE PRIOR TO ADVERSE EVENT: 23/FEB/2021.?QD
     Route: 042
     Dates: start: 20201222
  4. CARBOPLATIN [Suspect]
     Active Substance: CARBOPLATIN
     Indication: Non-small cell lung cancer stage IV
     Dosage: DATE OF LAST DOSE PRIOR TO ADVERSE EVENT: 23/FEB/2021?QD
     Route: 042
     Dates: start: 20201222
  5. LEVOTHYROXINE SODIUM [Concomitant]
     Active Substance: LEVOTHYROXINE SODIUM
     Dates: start: 20210901
  6. AMINO ACIDS, SOURCE UNSPECIFIED [Concomitant]
     Active Substance: AMINO ACIDS, SOURCE UNSPECIFIED
     Dates: start: 20210920, end: 20210920
  7. WINUF [Concomitant]
     Dates: start: 20210921, end: 20210922
  8. MORPHINE SULFATE [Concomitant]
     Active Substance: MORPHINE SULFATE
     Dates: start: 20210925, end: 20210927

REACTIONS (2)
  - Neutrophil count decreased [Recovered/Resolved]
  - Muscular weakness [Recovered/Resolved]

NARRATIVE: CASE EVENT DATE: 20210215
